FAERS Safety Report 16063712 (Version 2)
Quarter: 2019Q2

REPORT INFORMATION
  Report Type: Spontaneous
  Country: US (occurrence: CA)
  Receive Date: 20190312
  Receipt Date: 20190405
  Transmission Date: 20190711
  Serious: Yes (Hospitalization, Other)
  Sender: FDA-Public Use
  Company Number: US-JNJFOC-20190314217

PATIENT
  Age: 82 Year
  Sex: Male

DRUGS (10)
  1. PERINDOPRIL [Concomitant]
     Active Substance: PERINDOPRIL
     Route: 065
  2. MYRBETRIQ [Concomitant]
     Active Substance: MIRABEGRON
     Route: 065
  3. AMLODIPINE [Concomitant]
     Active Substance: AMLODIPINE BESYLATE
     Route: 065
  4. XARELTO [Suspect]
     Active Substance: RIVAROXABAN
     Indication: ATRIAL FIBRILLATION
     Route: 048
  5. BISOPROLOL [Concomitant]
     Active Substance: BISOPROLOL
     Route: 065
  6. BISOPROLOL [Concomitant]
     Active Substance: BISOPROLOL
     Dosage: 2.5 UNK
     Route: 065
  7. LIPITOR [Concomitant]
     Active Substance: ATORVASTATIN CALCIUM
     Route: 065
  8. METFORMIN [Concomitant]
     Active Substance: METFORMIN HYDROCHLORIDE
     Route: 065
  9. ELIQUIS [Concomitant]
     Active Substance: APIXABAN
     Route: 065
  10. ACETAMINOPHEN. [Concomitant]
     Active Substance: ACETAMINOPHEN
     Route: 065

REACTIONS (4)
  - Glomerular filtration rate decreased [Unknown]
  - Speech disorder [Recovered/Resolved]
  - Renal impairment [Not Recovered/Not Resolved]
  - Cerebrovascular accident [Unknown]
